FAERS Safety Report 9820531 (Version 2)
Quarter: 2014Q1

REPORT INFORMATION
  Report Type: Spontaneous
  Country: GB (occurrence: GB)
  Receive Date: 20140116
  Receipt Date: 20140328
  Transmission Date: 20141002
  Serious: Yes (Hospitalization, Other)
  Sender: FDA-Public Use
  Company Number: GB-B.I. PHARMACEUTICALS,INC./RIDGEFIELD-2014-BI-01716UK

PATIENT
  Age: 89 Year
  Sex: Female

DRUGS (7)
  1. PRADAXA [Suspect]
     Indication: KNEE OPERATION
     Route: 048
     Dates: start: 20131031, end: 20131114
  2. AMLODIPINE [Concomitant]
     Route: 065
  3. ATORVASTATIN [Concomitant]
     Route: 065
  4. LANSOPRAZOLE [Concomitant]
     Route: 065
  5. RAMIPRIL [Concomitant]
     Dosage: 10 MG
     Route: 065
  6. RANITIDINE [Concomitant]
     Route: 065
  7. TRAMADOL HYDROCHLORIDE [Concomitant]
     Route: 065

REACTIONS (2)
  - Hyponatraemia [Recovered/Resolved]
  - Inappropriate antidiuretic hormone secretion [Unknown]
